FAERS Safety Report 9929516 (Version 2)
Quarter: 2014Q2

REPORT INFORMATION
  Report Type: Spontaneous
  Country: NO (occurrence: NO)
  Receive Date: 20140227
  Receipt Date: 20140513
  Transmission Date: 20141212
  Serious: Yes (Hospitalization)
  Sender: FDA-Public Use
  Company Number: NO-GLAXOSMITHKLINE-B0972656A

PATIENT
  Age: 68 Year
  Sex: Female

DRUGS (1)
  1. REVOLADE [Suspect]
     Indication: REFRACTORY CYTOPENIA WITH MULTILINEAGE DYSPLASIA
     Dosage: 200MG PER DAY
     Route: 065
     Dates: start: 20131214, end: 20140219

REACTIONS (8)
  - Embolic pneumonia [Unknown]
  - Insomnia [Unknown]
  - Gait disturbance [Unknown]
  - Joint effusion [Unknown]
  - Transaminases increased [Recovered/Resolved]
  - Arthralgia [Recovering/Resolving]
  - Lung infiltration [Recovered/Resolved]
  - Arthritis [Unknown]
